FAERS Safety Report 5320243-2 (Version None)
Quarter: 2007Q2

REPORT INFORMATION
  Report Type: 
  Country: None (occurrence: None)
  Receive Date: 20070509
  Receipt Date: 20070504
  Transmission Date: 20071010
  Serious: Yes (Other)
  Sender: FDA-Public Use
  Company Number: B0469909A

PATIENT
  Age: 60 Year
  Sex: Female
  Weight: 54 kg

DRUGS (4)
  1. IMIGRAN [Suspect]
     Indication: MIGRAINE
     Route: 048
     Dates: start: 19930101
  2. ZOMIG [Suspect]
     Indication: MIGRAINE
     Route: 048
     Dates: start: 20050101
  3. RELPAX [Suspect]
     Indication: MIGRAINE
     Route: 048
     Dates: start: 20050101
  4. NARAMIG [Concomitant]
     Indication: MIGRAINE
     Route: 048
     Dates: start: 20050101

REACTIONS (1)
  - OPTIC DISC DISORDER [None]
